FAERS Safety Report 13263144 (Version 1)
Quarter: 2017Q1

REPORT INFORMATION
  Report Type: Spontaneous
  Country: IN (occurrence: IN)
  Receive Date: 20170223
  Receipt Date: 20170223
  Transmission Date: 20170428
  Serious: Yes (Congenital Anomaly, Other)
  Sender: FDA-Public Use
  Company Number: IN-SUN PHARMACEUTICAL INDUSTRIES LTD-2015R1-96925

PATIENT
  Sex: Male
  Weight: 2.25 kg

DRUGS (1)
  1. IMATINIB [Suspect]
     Active Substance: IMATINIB
     Indication: CHRONIC MYELOID LEUKAEMIA
     Dosage: 400 MG, DAILY
     Route: 064

REACTIONS (9)
  - Dextrocardia [Unknown]
  - Hemivertebra [Unknown]
  - Low birth weight baby [Unknown]
  - Premature baby [Unknown]
  - Anal atresia [Unknown]
  - Spina bifida occulta [Unknown]
  - Foetal exposure during pregnancy [Recovered/Resolved]
  - Microtia [Unknown]
  - Accessory auricle [Unknown]
